FAERS Safety Report 21193899 (Version 2)
Quarter: 2022Q3

REPORT INFORMATION
  Report Type: Other
  Country: US (occurrence: None)
  Receive Date: 20220810
  Receipt Date: 20220810
  Transmission Date: 20221027
  Serious: No
  Sender: FDA-Public Use
  Company Number: US-ROCHE-2385291

PATIENT
  Age: 46 Year
  Sex: Female

DRUGS (16)
  1. OCREVUS [Suspect]
     Active Substance: OCRELIZUMAB
     Indication: Relapsing multiple sclerosis
     Dosage: 300 MG ON DAT 1 AND DAY 15 FOLLOWED BY 600 MG EVERY 6 MONTHS.?NEXT DOSE ON 12/JUN/2019.
     Route: 042
     Dates: start: 20190529
  2. OCREVUS [Suspect]
     Active Substance: OCRELIZUMAB
     Route: 065
     Dates: start: 20190612
  3. OCREVUS [Suspect]
     Active Substance: OCRELIZUMAB
     Dosage: ONGOING- YES
     Route: 042
     Dates: start: 20190509
  4. OCREVUS [Suspect]
     Active Substance: OCRELIZUMAB
     Route: 042
     Dates: start: 20220622
  5. BENADRYL [Suspect]
     Active Substance: DIPHENHYDRAMINE HYDROCHLORIDE
     Indication: Product used for unknown indication
     Route: 065
  6. ACETAMINOPHEN [Concomitant]
     Active Substance: ACETAMINOPHEN
  7. METHYLPREDNISOLONE [Concomitant]
     Active Substance: METHYLPREDNISOLONE
  8. ALBUTEROL [Concomitant]
     Active Substance: ALBUTEROL
  9. BUPROPION [Concomitant]
     Active Substance: BUPROPION
  10. CALCIUM [Concomitant]
     Active Substance: CALCIUM
  11. CALCIUM CARBONATE [Concomitant]
     Active Substance: CALCIUM CARBONATE
  12. FAMOTIDINE [Concomitant]
     Active Substance: FAMOTIDINE
  13. FLUTICASONE [Concomitant]
     Active Substance: FLUTICASONE
  14. LEVONORGESTREL [Concomitant]
     Active Substance: LEVONORGESTREL
  15. LORATADINE [Concomitant]
     Active Substance: LORATADINE
  16. MODAFINIL [Concomitant]
     Active Substance: MODAFINIL

REACTIONS (12)
  - Chest discomfort [Recovered/Resolved]
  - Thirst [Not Recovered/Not Resolved]
  - Fatigue [Not Recovered/Not Resolved]
  - Respiratory disorder [Recovered/Resolved]
  - Alopecia [Recovered/Resolved]
  - Drug ineffective [Unknown]
  - Bone disorder [Not Recovered/Not Resolved]
  - Feeling abnormal [Not Recovered/Not Resolved]
  - Muscle tightness [Unknown]
  - Balance disorder [Unknown]
  - Aphasia [Unknown]
  - COVID-19 [Unknown]

NARRATIVE: CASE EVENT DATE: 20190529
